FAERS Safety Report 9288263 (Version 1)
Quarter: 2013Q2

REPORT INFORMATION
  Report Type: Spontaneous
  Country: US (occurrence: US)
  Receive Date: 20130514
  Receipt Date: 20130514
  Transmission Date: 20140414
  Serious: No
  Sender: FDA-Public Use
  Company Number: US-PFIZER INC-2013145608

PATIENT
  Age: 54 Year
  Sex: Female

DRUGS (8)
  1. ARTHROTEC [Suspect]
     Dosage: UNK
  2. ERYTHROMYCIN [Suspect]
     Dosage: UNK
  3. NAPROXEN SODIUM [Suspect]
     Dosage: UNK
  4. PSEUDOEPHEDRINE [Suspect]
     Dosage: UNK
  5. TRILIPIX [Suspect]
     Dosage: UNK
  6. AMERGE [Suspect]
     Dosage: UNK
  7. DEPAKOTE [Suspect]
     Dosage: UNK
  8. DURAPHEN [Suspect]
     Dosage: UNK

REACTIONS (1)
  - Drug hypersensitivity [Unknown]
